FAERS Safety Report 9760658 (Version 3)
Quarter: 2014Q1

REPORT INFORMATION
  Report Type: Spontaneous
  Country: US (occurrence: US)
  Receive Date: 20131216
  Receipt Date: 20140312
  Transmission Date: 20141002
  Serious: No
  Sender: FDA-Public Use
  Company Number: US-BIOGENIDEC-2013BI099986

PATIENT
  Age: 42 Year
  Sex: Female

DRUGS (5)
  1. TECFIDERA [Suspect]
     Indication: MULTIPLE SCLEROSIS
     Route: 048
     Dates: start: 20131007
  2. TECFIDERA [Suspect]
     Indication: MULTIPLE SCLEROSIS
     Route: 048
     Dates: start: 20131008, end: 20131008
  3. TECFIDERA [Suspect]
     Indication: MULTIPLE SCLEROSIS
     Dates: end: 201312
  4. CYMBALTA [Concomitant]
  5. LISINOPRIL [Concomitant]

REACTIONS (1)
  - Hypersensitivity [Recovered/Resolved]
